FAERS Safety Report 5359457-4 (Version None)
Quarter: 2007Q2

REPORT INFORMATION
  Report Type: 
  Country: None (occurrence: None)
  Receive Date: 20070615
  Receipt Date: 20070604
  Transmission Date: 20071010
  Serious: Yes (Death, Hospitalization)
  Sender: FDA-Public Use
  Company Number: IT-PFIZER INC-2007044915

PATIENT
  Sex: Male
  Weight: 62 kg

DRUGS (9)
  1. SU-011,248 [Suspect]
     Indication: METASTATIC RENAL CELL CARCINOMA
     Route: 048
     Dates: start: 20051009, end: 20070528
  2. XATRAL [Concomitant]
     Route: 048
     Dates: start: 20030101, end: 20060601
  3. HEPARIN [Concomitant]
     Route: 058
     Dates: start: 20050817, end: 20060601
  4. EUTIROX [Concomitant]
     Route: 048
     Dates: start: 20040929, end: 20060601
  5. CORTISONE ACETATE [Concomitant]
     Route: 048
     Dates: start: 19970205, end: 20060601
  6. FLUDROCORTISONE ACETATE [Concomitant]
     Route: 048
     Dates: start: 20020101, end: 20060601
  7. ZANEDIP [Concomitant]
     Route: 048
     Dates: start: 20000101, end: 20060601
  8. DOXOFYLLINE [Concomitant]
     Route: 048
     Dates: start: 19990101, end: 20060601
  9. BRONCOVALEAS [Concomitant]
     Route: 048
     Dates: start: 20050801, end: 20060601

REACTIONS (3)
  - CEREBROVASCULAR ACCIDENT [None]
  - DIARRHOEA [None]
  - VOMITING [None]
